FAERS Safety Report 4550147-4 (Version None)
Quarter: 2005Q1

REPORT INFORMATION
  Report Type: 
  Country: None (occurrence: None)
  Receive Date: 20050107
  Receipt Date: 20041227
  Transmission Date: 20050727
  Serious: Yes (Hospitalization, Other)
  Sender: FDA-Public Use
  Company Number: 2005002103

PATIENT
  Age: 74 Year
  Sex: Female
  Weight: 87.5442 kg

DRUGS (11)
  1. BEXTRA [Suspect]
     Indication: PAIN
     Dosage: 10 MG, EVERY DAY), ORAL
     Route: 048
  2. AMLODIPINE BESILATE(AMLODIPINE BESILATE0 [Concomitant]
  3. HYDROXYCHLOROQUINE SULFATE [Concomitant]
  4. ESCITALOPRAM (ESCITALOPRAM0 [Concomitant]
  5. CLONAZEPAM [Concomitant]
  6. NORTRIPTYLINE HCL [Concomitant]
  7. LANSOPRAZOLE [Concomitant]
  8. ALENDORONATE SODIUM (ALENDRONATE SODIUM) [Concomitant]
  9. ASCORBIC ACID [Concomitant]
  10. GLUCOSAMINE W/ CHONDROITIN SULFATES (ASCORBIC ACID, CHONDROITIN [Concomitant]
  11. PARACETAOML (PARACETAMOL) [Concomitant]

REACTIONS (2)
  - BLADDER PROLAPSE [None]
  - SKIN DISORDER [None]
